FAERS Safety Report 5551164-8 (Version None)
Quarter: 2007Q4

REPORT INFORMATION
  Report Type: 
  Country: None (occurrence: None)
  Receive Date: 20071212
  Receipt Date: 20070524
  Transmission Date: 20080405
  Serious: No
  Sender: FDA-Public Use
  Company Number: US-AMGEN-KDL226419

PATIENT
  Sex: Female

DRUGS (3)
  1. ENBREL [Suspect]
     Indication: RHEUMATOID ARTHRITIS
     Route: 058
     Dates: start: 20070312
  2. PLAQUENIL [Concomitant]
     Route: 048
  3. METHOTREXATE [Concomitant]
     Route: 048
     Dates: start: 20050801

REACTIONS (6)
  - DYSURIA [None]
  - INJECTION SITE ERYTHEMA [None]
  - INJECTION SITE PRURITUS [None]
  - OEDEMA [None]
  - RESIDUAL URINE [None]
  - WEIGHT INCREASED [None]
